FAERS Safety Report 18312985 (Version 1)
Quarter: 2020Q3

REPORT INFORMATION
  Report Type: Spontaneous
  Country: US (occurrence: US)
  Receive Date: 20200925
  Receipt Date: 20200925
  Transmission Date: 20201103
  Serious: Yes (Hospitalization)
  Sender: FDA-Public Use
  Company Number: US-NOVITIUMPHARMA-2020USNVP00067

PATIENT
  Age: 54 Year
  Sex: Male

DRUGS (4)
  1. METHYLPREDNISOLONE. [Suspect]
     Active Substance: METHYLPREDNISOLONE
     Indication: MYOPATHY
  2. PREDNISONE. [Suspect]
     Active Substance: PREDNISONE
  3. RITUXIMAB. [Suspect]
     Active Substance: RITUXIMAB
     Indication: MYOPATHY
  4. PREDNISONE. [Suspect]
     Active Substance: PREDNISONE
     Indication: MYOPATHY

REACTIONS (7)
  - Fall [Unknown]
  - Dizziness [Unknown]
  - Symptom recurrence [Recovering/Resolving]
  - Haematoma [Unknown]
  - Syncope [Unknown]
  - Subarachnoid haemorrhage [Unknown]
  - Muscular weakness [Recovering/Resolving]
